FAERS Safety Report 5293107-0 (Version None)
Quarter: 2007Q2

REPORT INFORMATION
  Report Type: 
  Country: None (occurrence: None)
  Receive Date: 20070411
  Receipt Date: 20070327
  Transmission Date: 20071010
  Serious: Yes (Hospitalization, Other)
  Sender: FDA-Public Use
  Company Number: US-BAYER-200710491BWH

PATIENT
  Age: 44 Year
  Sex: Male

DRUGS (1)
  1. AVELOX [Suspect]
     Indication: SINUSITIS
     Dosage: AS USED: 400 MG  UNIT DOSE: 400 MG
     Route: 048
     Dates: start: 20070124

REACTIONS (7)
  - ANGIOEDEMA [None]
  - CARDIAC ENZYMES INCREASED [None]
  - ELECTROCARDIOGRAM Q WAVE ABNORMAL [None]
  - PHARYNGEAL OEDEMA [None]
  - RESPIRATORY ARREST [None]
  - SWELLING FACE [None]
  - TROPONIN INCREASED [None]
